FAERS Safety Report 23918883 (Version 1)
Quarter: 2024Q2

REPORT INFORMATION
  Report Type: Spontaneous
  Country: FR (occurrence: None)
  Receive Date: 20240530
  Receipt Date: 20240530
  Transmission Date: 20240716
  Serious: Yes (Death)
  Sender: FDA-Public Use
  Company Number: FR-ROCHE-3503209

PATIENT
  Age: 83 Year
  Sex: Female
  Weight: 39 kg

DRUGS (1)
  1. COLUMVI [Suspect]
     Active Substance: GLOFITAMAB-GXBM
     Indication: Diffuse large B-cell lymphoma refractory
     Route: 042
     Dates: start: 20240125

REACTIONS (4)
  - Diffuse large B-cell lymphoma refractory [Fatal]
  - C-reactive protein increased [Unknown]
  - Thrombocytopenia [Not Recovered/Not Resolved]
  - Toxicity to various agents [Unknown]
